FAERS Safety Report 5154774-5 (Version None)
Quarter: 2006Q4

REPORT INFORMATION
  Report Type: 
  Country: None (occurrence: None)
  Receive Date: 20061115
  Receipt Date: 20061115
  Transmission Date: 20070319
  Serious: Yes (Other)
  Sender: FDA-Public Use
  Company Number: None

PATIENT
  Age: 50 Year
  Sex: Female
  Weight: 73.9363 kg

DRUGS (5)
  1. EFFEXOR XR [Suspect]
     Indication: DEPRESSION
     Dosage: IN MORNING  ONCE DAILY  PO
     Route: 048
     Dates: start: 20060901, end: 20061116
  2. EFFEXOR XR [Suspect]
     Indication: GENERALISED ANXIETY DISORDER
     Dosage: IN MORNING  ONCE DAILY  PO
     Route: 048
     Dates: start: 20060901, end: 20061116
  3. EFFEXOR XR [Suspect]
     Indication: OBSESSIVE-COMPULSIVE DISORDER
     Dosage: IN MORNING  ONCE DAILY  PO
     Route: 048
     Dates: start: 20060901, end: 20061116
  4. EFFEXOR XR [Suspect]
     Indication: POST-TRAUMATIC STRESS DISORDER
     Dosage: IN MORNING  ONCE DAILY  PO
     Route: 048
     Dates: start: 20060901, end: 20061116
  5. EFFEXOR XR [Suspect]
     Indication: SOCIAL PHOBIA
     Dosage: IN MORNING  ONCE DAILY  PO
     Route: 048
     Dates: start: 20060901, end: 20061116

REACTIONS (11)
  - AGGRESSION [None]
  - AMNESIA [None]
  - DRUG INEFFECTIVE [None]
  - FATIGUE [None]
  - FEAR [None]
  - INSOMNIA [None]
  - MIDDLE INSOMNIA [None]
  - MIGRAINE [None]
  - NAUSEA [None]
  - PAIN [None]
  - SUICIDAL IDEATION [None]
